FAERS Safety Report 25446713 (Version 3)
Quarter: 2025Q4

REPORT INFORMATION
  Report Type: Spontaneous
  Country: US (occurrence: None)
  Receive Date: 20250617
  Receipt Date: 20251217
  Transmission Date: 20260118
  Serious: No
  Sender: UCB
  Company Number: US-UCBSA-2025016097

PATIENT
  Age: 31 Year

DRUGS (2)
  1. BIMZELX [Suspect]
     Active Substance: BIMEKIZUMAB-BKZX
     Indication: Hidradenitis
     Dosage: 320 MILLIGRAM, EV 2 WEEKS(QOW) (FOR WEEKS 4-16 THEN EVERY 4 WEEKS AS DIRECTED)
  2. BIMZELX [Suspect]
     Active Substance: BIMEKIZUMAB-BKZX
     Dosage: 320 MILLIGRAM, EV 4 WEEKS

REACTIONS (5)
  - Injection site pain [Unknown]
  - Urinary tract infection [Unknown]
  - Furuncle [Unknown]
  - Sinusitis [Unknown]
  - Product dose omission issue [Unknown]
